FAERS Safety Report 8075571-7 (Version None)
Quarter: 2012Q1

REPORT INFORMATION
  Report Type: 
  Country: None (occurrence: None)
  Receive Date: 20120127
  Receipt Date: 20120119
  Transmission Date: 20120608
  Serious: Yes (Other)
  Sender: FDA-Public Use
  Company Number: GR-BRISTOL-MYERS SQUIBB COMPANY-16357337

PATIENT
  Age: 82 Year
  Sex: Female

DRUGS (6)
  1. DISOPYRAMIDE PHOSPHATE [Concomitant]
     Indication: ATRIAL FIBRILLATION
  2. EXELON [Concomitant]
     Indication: DEMENTIA ALZHEIMER'S TYPE
  3. ENALAPRIL MALEATE AND HYDROCHLOROTHIAZIDE [Concomitant]
     Indication: HYPERTENSION
  4. ABILIFY [Suspect]
     Indication: PSYCHOTIC DISORDER
     Dosage: 1 DF= HALF TABLET
     Route: 048
     Dates: start: 20120117
  5. LEXOTANIL [Concomitant]
     Dosage: 1/2 TAB PER DAY
  6. SOTALOL HCL [Concomitant]
     Indication: ARRHYTHMIA

REACTIONS (3)
  - RESPIRATORY DISTRESS [None]
  - INSOMNIA [None]
  - ILLUSION [None]
